FAERS Safety Report 5340994-3 (Version None)
Quarter: 2007Q2

REPORT INFORMATION
  Report Type: 
  Country: None (occurrence: None)
  Receive Date: 20070405
  Receipt Date: 20061120
  Transmission Date: 20071010
  Serious: No
  Sender: FDA-Public Use
  Company Number: US200608000151

PATIENT
  Age: 54 Year
  Sex: Female

DRUGS (4)
  1. CYMBALTA [Suspect]
     Indication: FIBROMYALGIA
     Dosage: 30 MG, ORAL
     Route: 048
     Dates: start: 20060720, end: 20060721
  2. PROZAC [Suspect]
     Indication: DEPRESSION
     Dates: start: 19980101
  3. CLARITIN-D [Concomitant]
  4. CELEBREX [Concomitant]

REACTIONS (8)
  - AGGRESSION [None]
  - AGITATION [None]
  - ANXIETY [None]
  - FATIGUE [None]
  - NAUSEA [None]
  - PRURITUS GENERALISED [None]
  - SUICIDAL IDEATION [None]
  - TREMOR [None]
